FAERS Safety Report 6543832-6 (Version None)
Quarter: 2010Q1

REPORT INFORMATION
  Report Type: 
  Country: None (occurrence: None)
  Receive Date: 20100119
  Receipt Date: 20100119
  Transmission Date: 20100710
  Serious: No
  Sender: FDA-Public Use
  Company Number: None

PATIENT
  Age: 55 Year
  Sex: Male

DRUGS (4)
  1. HEPARIN SODIUM [Suspect]
     Indication: PROPHYLAXIS
     Dosage: 30 ML OF 1000UNITS/ML F
     Dates: start: 20091208
  2. HEPARIN SODIUM [Suspect]
     Indication: SURGERY
     Dosage: 30 ML OF 1000UNITS/ML F
     Dates: start: 20091208
  3. HEPARIN SODIUM [Suspect]
     Indication: PROPHYLAXIS
     Dosage: 30 ML OF 1000UNITS/ML F
     Dates: start: 20091211
  4. HEPARIN SODIUM [Suspect]
     Indication: SURGERY
     Dosage: 30 ML OF 1000UNITS/ML F
     Dates: start: 20091211

REACTIONS (2)
  - DRUG HYPERSENSITIVITY [None]
  - PLATELET COUNT DECREASED [None]
